FAERS Safety Report 9869512 (Version 5)
Quarter: 2014Q1

REPORT INFORMATION
  Report Type: Spontaneous
  Country: US (occurrence: US)
  Receive Date: 20140205
  Receipt Date: 20140319
  Transmission Date: 20141002
  Serious: Yes (Hospitalization, Other)
  Sender: FDA-Public Use
  Company Number: US-009507513-1206USA03488

PATIENT
  Sex: Female
  Weight: 76.64 kg

DRUGS (3)
  1. FOSAMAX [Suspect]
     Indication: OSTEOPOROSIS
     Dosage: 70 MG, QW
     Route: 048
     Dates: start: 20050104
  2. FOSAMAX PLUS D [Suspect]
     Indication: OSTEOPOROSIS
     Dosage: 70MG-2800IU QW
     Route: 048
     Dates: end: 20090323
  3. FOSAMAX PLUS D [Suspect]
     Dosage: 70MG-5600IU
     Route: 048

REACTIONS (18)
  - Femur fracture [Recovering/Resolving]
  - Intramedullary rod insertion [Unknown]
  - Radius fracture [Unknown]
  - Anaemia postoperative [Unknown]
  - Fall [Unknown]
  - Femur fracture [Unknown]
  - Hand fracture [Unknown]
  - Wrist surgery [Unknown]
  - Osteopenia [Unknown]
  - Hypertension [Unknown]
  - Hypercholesterolaemia [Unknown]
  - Cholelithiasis [Unknown]
  - Diabetes mellitus [Unknown]
  - Mitral valve prolapse [Unknown]
  - Urinary tract infection enterococcal [Unknown]
  - Rales [Unknown]
  - Nausea [Recovered/Resolved]
  - Constipation [Unknown]
